FAERS Safety Report 9741963 (Version 1)
Quarter: 2013Q4

REPORT INFORMATION
  Report Type: Spontaneous
  Country: US (occurrence: US)
  Receive Date: 20131210
  Receipt Date: 20131210
  Transmission Date: 20140711
  Serious: No
  Sender: FDA-Public Use
  Company Number: US-PFIZER INC-2013349556

PATIENT
  Age: 53 Year
  Sex: Female
  Weight: 54.42 kg

DRUGS (2)
  1. PREMARIN [Suspect]
     Indication: MENOPAUSAL SYMPTOMS
     Dosage: UNK, AS NEEDED
     Route: 067
     Dates: end: 20130905
  2. FAMOTIDINE [Concomitant]
     Indication: GASTROOESOPHAGEAL REFLUX DISEASE
     Dosage: 20 MG, 1X/DAY

REACTIONS (5)
  - Vulvovaginal dryness [Unknown]
  - Vulvovaginal swelling [Unknown]
  - Genital herpes [Unknown]
  - Vulvovaginal burning sensation [Unknown]
  - Vulvovaginal pruritus [Unknown]
